FAERS Safety Report 9510021 (Version 2)
Quarter: 2014Q3

REPORT INFORMATION
  Report Type: Spontaneous
  Country: US (occurrence: US)
  Receive Date: 20130909
  Receipt Date: 20140908
  Transmission Date: 20150326
  Serious: No
  Sender: FDA-Public Use
  Company Number: US-BRISTOL-MYERS SQUIBB COMPANY-18861195

PATIENT
  Age: 53 Year
  Sex: Female
  Weight: 120.18 kg

DRUGS (14)
  1. OMEPRAZOLE. [Concomitant]
     Active Substance: OMEPRAZOLE
  2. ALBUTEROL. [Concomitant]
     Active Substance: ALBUTEROL
  3. TRAZODONE HYDROCHLORIDE. [Concomitant]
     Active Substance: TRAZODONE HYDROCHLORIDE
  4. LOSARTAN [Concomitant]
     Active Substance: LOSARTAN
  5. SYMBICORT [Concomitant]
     Active Substance: BUDESONIDE\FORMOTEROL FUMARATE DIHYDRATE
  6. ABILIFY [Suspect]
     Active Substance: ARIPIPRAZOLE
     Indication: SCHIZOPHRENIA
     Route: 065
  7. PROAIR HFA [Concomitant]
     Active Substance: ALBUTEROL SULFATE
  8. ATIVAN [Concomitant]
     Active Substance: LORAZEPAM
  9. FOLIC ACID. [Concomitant]
     Active Substance: FOLIC ACID
  10. INDERAL [Concomitant]
     Active Substance: PROPRANOLOL HYDROCHLORIDE
  11. SINGULAIR [Concomitant]
     Active Substance: MONTELUKAST SODIUM
  12. ESTRADIOL. [Concomitant]
     Active Substance: ESTRADIOL
  13. TALWIN [Concomitant]
     Active Substance: PENTAZOCINE LACTATE
  14. EFFEXOR [Concomitant]
     Active Substance: VENLAFAXINE HYDROCHLORIDE

REACTIONS (2)
  - Fall [Unknown]
  - Tardive dyskinesia [Unknown]
